FAERS Safety Report 6074707-7 (Version None)
Quarter: 2009Q1

REPORT INFORMATION
  Report Type: 
  Country: None (occurrence: None)
  Receive Date: 20090212
  Receipt Date: 20090130
  Transmission Date: 20090719
  Serious: Yes (Other)
  Sender: FDA-Public Use
  Company Number: AU-WYE-H08074609

PATIENT
  Age: 45 Year
  Sex: Male

DRUGS (8)
  1. PANTOPRAZOLE [Suspect]
  2. TACROLIMUS [Suspect]
     Indication: PROPHYLAXIS AGAINST TRANSPLANT REJECTION
  3. CALCIUM CARBONATE [Concomitant]
  4. CREON [Concomitant]
     Indication: PANCREATIC ENZYME ABNORMALITY
     Dosage: 10,000 TO 20,000 U PER MEAL
  5. ESOMEPRAZOLE MAGNESIUM [Suspect]
  6. PREDNISOLONE [Suspect]
     Indication: UPPER RESPIRATORY TRACT INFECTION
  7. PREDNISOLONE [Suspect]
     Indication: PROPHYLAXIS AGAINST TRANSPLANT REJECTION
  8. AZATHIOPRINE [Suspect]

REACTIONS (4)
  - HYPERPARATHYROIDISM SECONDARY [None]
  - HYPOCALCAEMIA [None]
  - HYPOMAGNESAEMIA [None]
  - VITAMIN D DEFICIENCY [None]
